FAERS Safety Report 4935181-4 (Version None)
Quarter: 2006Q1

REPORT INFORMATION
  Report Type: 
  Country: None (occurrence: None)
  Receive Date: 20060302
  Receipt Date: 20060214
  Transmission Date: 20060701
  Serious: Yes (Other)
  Sender: FDA-Public Use
  Company Number: US200602003018

PATIENT
  Age: 64 Year
  Sex: Female

DRUGS (3)
  1. HUMALOG MIX 75/25 [Suspect]
     Indication: DIABETES MELLITUS INSULIN-DEPENDENT
     Dosage: SEE IMAGE
  2. HUMALOG MIX 75/25 [Suspect]
  3. DARVOCET-N 100 [Concomitant]

REACTIONS (5)
  - EYE DISCHARGE [None]
  - EYE HAEMORRHAGE [None]
  - EYE SWELLING [None]
  - HEADACHE [None]
  - VISUAL ACUITY REDUCED [None]
